FAERS Safety Report 19465911 (Version 1)
Quarter: 2021Q2

REPORT INFORMATION
  Report Type: Spontaneous
  Country: BR (occurrence: BR)
  Receive Date: 20210627
  Receipt Date: 20210627
  Transmission Date: 20210717
  Serious: Yes (Other)
  Sender: FDA-Public Use
  Company Number: NVSC2021BR121437

PATIENT
  Sex: Male
  Weight: 78 kg

DRUGS (9)
  1. NPH INSULIN [Concomitant]
     Active Substance: INSULIN BEEF
     Indication: DIABETES MELLITUS
     Dosage: UNK (3 APPLICATIONS A DAY (MORNING, LUNCH AND EVENING))
     Route: 058
     Dates: start: 2005
  2. INSULIN [Concomitant]
     Active Substance: INSULIN NOS
     Indication: DIABETES MELLITUS
     Dosage: UNK, QD
     Route: 058
     Dates: start: 2005
  3. DIOVAN [Suspect]
     Active Substance: VALSARTAN
     Indication: HYPERTENSION
     Dosage: 1 DF, QD (320 MG)
     Route: 048
     Dates: start: 2020, end: 2020
  4. CARVEDILOL. [Concomitant]
     Active Substance: CARVEDILOL
     Indication: HYPERTENSION
     Dosage: 1 DF, QD
     Route: 048
     Dates: start: 2017
  5. FUROSEMIDE. [Concomitant]
     Active Substance: FUROSEMIDE
     Indication: HYPERTENSION
     Dosage: 1 DF, QD (2 YEARS AGO)
     Route: 048
     Dates: start: 2019
  6. HYDROCHLOROTIAZID [Concomitant]
     Indication: HYPERTENSION
     Dosage: 1 DF, QD
     Route: 048
     Dates: start: 2020
  7. AMLODIPINE [Concomitant]
     Active Substance: AMLODIPINE BESYLATE
     Indication: HYPERTENSION
     Dosage: 1 DF, QD
     Route: 048
     Dates: start: 2017
  8. DIOVAN [Suspect]
     Active Substance: VALSARTAN
     Dosage: 1 DF, QD (160 MG)
     Route: 048
     Dates: start: 202104
  9. SUSTRATE [Concomitant]
     Active Substance: PROPATYL NITRATE
     Indication: HYPERTENSION
     Dosage: 1 DF, QD
     Route: 048
     Dates: start: 2017

REACTIONS (3)
  - Coronary artery occlusion [Recovered/Resolved]
  - Blood pressure decreased [Recovered/Resolved]
  - Chest pain [Recovered/Resolved]

NARRATIVE: CASE EVENT DATE: 2020
